FAERS Safety Report 9226634 (Version 5)
Quarter: 2013Q4

REPORT INFORMATION
  Report Type: Spontaneous
  Country: JP (occurrence: JP)
  Receive Date: 20130412
  Receipt Date: 20131029
  Transmission Date: 20140711
  Serious: Yes (Other)
  Sender: FDA-Public Use
  Company Number: JP-PFIZER INC-2013114409

PATIENT
  Age: 91 Year
  Sex: Male
  Weight: 50 kg

DRUGS (3)
  1. ZOSYN [Suspect]
     Indication: PNEUMONIA ASPIRATION
     Dosage: 4.5 MG, 2X/DAY
     Route: 041
     Dates: start: 20130401, end: 20130401
  2. ZOSYN [Suspect]
     Indication: SEPSIS
  3. VASOLAN [Concomitant]
     Dosage: 1A/DAY
     Route: 042
     Dates: start: 20130401, end: 20130401

REACTIONS (2)
  - Rhabdomyolysis [Recovered/Resolved]
  - Drug eruption [Unknown]
